FAERS Safety Report 20407931 (Version 1)
Quarter: 2022Q1

REPORT INFORMATION
  Report Type: Report from Study
  Country: EG (occurrence: EG)
  Receive Date: 20220201
  Receipt Date: 20220201
  Transmission Date: 20220423
  Serious: Yes (Death)
  Sender: FDA-Public Use
  Company Number: EG-ABBVIE-22K-048-4257922-00

PATIENT
  Age: 23 Year
  Sex: Male

DRUGS (3)
  1. VENCLEXTA [Suspect]
     Active Substance: VENETOCLAX
     Indication: Acute myeloid leukaemia
     Route: 048
     Dates: start: 20220123, end: 20220123
  2. VENCLEXTA [Suspect]
     Active Substance: VENETOCLAX
     Route: 048
     Dates: start: 20220124, end: 20220124
  3. VENCLEXTA [Suspect]
     Active Substance: VENETOCLAX
     Route: 048
     Dates: start: 20220125, end: 20220125

REACTIONS (4)
  - Hepatic enzyme abnormal [Fatal]
  - Generalised oedema [Fatal]
  - Ulcer [Fatal]
  - Pyrexia [Fatal]

NARRATIVE: CASE EVENT DATE: 20220101
